FAERS Safety Report 11807847 (Version 1)
Quarter: 2015Q4

REPORT INFORMATION
  Report Type: Spontaneous
  Country: DE (occurrence: DE)
  Receive Date: 20151207
  Receipt Date: 20151207
  Transmission Date: 20160305
  Serious: Yes (Congenital Anomaly, Other)
  Sender: FDA-Public Use
  Company Number: DE-TEVA-613468GER

PATIENT
  Age: 1 Day
  Sex: Male
  Weight: 3.29 kg

DRUGS (5)
  1. CITALOPRAM [Suspect]
     Active Substance: CITALOPRAM HYDROBROMIDE
     Indication: DEPRESSION
     Dosage: 40 MILLIGRAM DAILY;
     Route: 064
     Dates: start: 20140727, end: 20150428
  2. TALVOSILEN [Suspect]
     Active Substance: ACETAMINOPHEN\CODEINE PHOSPHATE
     Indication: LABOUR PAIN
     Route: 064
     Dates: start: 20150428, end: 20150428
  3. LAMOTRIGIN [Suspect]
     Active Substance: LAMOTRIGINE
     Indication: EPILEPSY
     Dosage: 200 MILLIGRAM DAILY;
     Route: 064
     Dates: start: 20140727, end: 20150428
  4. CYTOTEC [Concomitant]
     Active Substance: MISOPROSTOL
     Indication: LABOUR INDUCTION
     Route: 064
  5. BUSCOPAN [Concomitant]
     Active Substance: BUTYLSCOPOLAMINE BROMIDE
     Indication: LABOUR PAIN
     Route: 064
     Dates: start: 20150428, end: 20150428

REACTIONS (4)
  - External auditory canal atresia [Not Recovered/Not Resolved]
  - Foetal exposure during pregnancy [Unknown]
  - Respiratory disorder neonatal [Recovered/Resolved]
  - Anomaly of external ear congenital [Not Recovered/Not Resolved]

NARRATIVE: CASE EVENT DATE: 20150428
